FAERS Safety Report 10736347 (Version 1)
Quarter: 2015Q1

REPORT INFORMATION
  Report Type: Spontaneous
  Country: US (occurrence: None)
  Receive Date: 20150122
  Receipt Date: 20150122
  Transmission Date: 20150721
  Serious: Yes (Disabling)
  Sender: FDA-Public Use
  Company Number: None

PATIENT
  Age: 58 Year
  Sex: Female
  Weight: 83.92 kg

DRUGS (1)
  1. PHENTERMINE 37.5 [Suspect]
     Active Substance: PHENTERMINE
     Indication: WEIGHT CONTROL
     Dosage: 1/2 TWICE DAILY TAKEN BY MOUTH
     Route: 048

REACTIONS (4)
  - Dizziness [None]
  - Gastrointestinal motility disorder [None]
  - Pruritus [None]
  - Infected skin ulcer [None]

NARRATIVE: CASE EVENT DATE: 20141103
